FAERS Safety Report 9154503 (Version 1)
Quarter: 2013Q1

REPORT INFORMATION
  Report Type: Spontaneous
  Country: US (occurrence: None)
  Receive Date: 20130306
  Receipt Date: 20130306
  Transmission Date: 20140127
  Serious: Yes (Life-Threatening, Hospitalization, Other)
  Sender: FDA-Public Use
  Company Number: None

PATIENT
  Age: 77 Year
  Sex: 0

DRUGS (1)
  1. WARFARIN [Suspect]

REACTIONS (4)
  - Nausea [None]
  - Vomiting [None]
  - Gastrointestinal haemorrhage [None]
  - International normalised ratio increased [None]
